FAERS Safety Report 20114069 (Version 2)
Quarter: 2021Q4

REPORT INFORMATION
  Report Type: Spontaneous
  Country: GR (occurrence: GR)
  Receive Date: 20211125
  Receipt Date: 20211215
  Transmission Date: 20220303
  Serious: Yes (Other)
  Sender: FDA-Public Use
  Company Number: GR-009507513-2111GRC008229

PATIENT
  Age: 55 Year
  Sex: Male

DRUGS (1)
  1. PEMBROLIZUMAB [Suspect]
     Active Substance: PEMBROLIZUMAB
     Indication: Hypopharyngeal cancer stage IV
     Dosage: 200 MILLIGRAM, Q3W

REACTIONS (1)
  - Immune-mediated arthritis [Recovered/Resolved]
